FAERS Safety Report 14320943 (Version 3)
Quarter: 2018Q4

REPORT INFORMATION
  Report Type: Report from Study
  Country: JP (occurrence: JP)
  Receive Date: 20171223
  Receipt Date: 20181226
  Transmission Date: 20190204
  Serious: Yes (Hospitalization, Other)
  Sender: FDA-Public Use
  Company Number: JP-AMGEN-JPNCT2017190253

PATIENT
  Age: 84 Year
  Sex: Female

DRUGS (52)
  1. WARFARIN [Concomitant]
     Active Substance: WARFARIN
     Dosage: 3 MG, UNK
     Route: 048
     Dates: start: 20170425, end: 20170619
  2. WARFARIN [Concomitant]
     Active Substance: WARFARIN
     Dosage: 3 MG, UNK
     Route: 048
     Dates: start: 20170815, end: 20171009
  3. VESICARE [Concomitant]
     Active Substance: SOLIFENACIN SUCCINATE
     Indication: HYPERTONIC BLADDER
     Dosage: 5 MG, UNK
     Route: 048
  4. CALONAL [Concomitant]
     Active Substance: ACETAMINOPHEN
     Dosage: 200 MG, UNK
     Route: 048
     Dates: start: 20170502, end: 20170511
  5. POPIDON [Concomitant]
     Dosage: ADEQUATE DOSE, UNK
     Route: 049
     Dates: start: 20170620
  6. BELSOMRA [Concomitant]
     Active Substance: SUVOREXANT
     Dosage: 15 MG, UNK
     Route: 048
     Dates: start: 20171016
  7. DARBEPOETIN ALFA [Suspect]
     Active Substance: DARBEPOETIN ALFA
     Dosage: 240 MUG, QWK
     Route: 058
     Dates: start: 20170620, end: 20171031
  8. WARFARIN [Concomitant]
     Active Substance: WARFARIN
     Dosage: 2 MG, UNK
     Route: 048
     Dates: start: 20171124
  9. CALONAL [Concomitant]
     Active Substance: ACETAMINOPHEN
     Dosage: 300 MG, UNK
     Route: 048
     Dates: end: 20170508
  10. EXJADE [Concomitant]
     Active Substance: DEFERASIROX
     Indication: IRON OVERLOAD
     Dosage: 250 MG, UNK
     Route: 048
     Dates: start: 20170117, end: 20170213
  11. EXJADE [Concomitant]
     Active Substance: DEFERASIROX
     Dosage: 500 MG, UNK
     Route: 048
     Dates: start: 20170815, end: 20170911
  12. TRAMCET [Concomitant]
     Active Substance: ACETAMINOPHEN\TRAMADOL
     Dosage: 4 DF, UNK
     Route: 048
     Dates: start: 20171103
  13. ROZEREM [Concomitant]
     Active Substance: RAMELTEON
     Dosage: 8 MG, UNK
     Route: 048
     Dates: start: 20171106
  14. SODIUM RABEPRAZOLE [Concomitant]
     Active Substance: RABEPRAZOLE SODIUM
     Indication: PROPHYLAXIS
     Dosage: 10 MG, UNK
     Route: 048
     Dates: start: 20171016
  15. DARBEPOETIN ALFA [Suspect]
     Active Substance: DARBEPOETIN ALFA
     Indication: MYELODYSPLASTIC SYNDROME
     Dosage: 240 MUG, QWK
     Route: 058
     Dates: start: 20151208, end: 20160301
  16. WARFARIN [Concomitant]
     Active Substance: WARFARIN
     Dosage: 3 MG, UNK
     Route: 048
     Dates: start: 20161108, end: 20170327
  17. WARFARIN [Concomitant]
     Active Substance: WARFARIN
     Dosage: 2.5 MG, UNK
     Route: 048
     Dates: start: 20171010, end: 20171019
  18. REBAMIPIDE [Concomitant]
     Active Substance: REBAMIPIDE
     Indication: PROPHYLAXIS
     Dosage: 100 MG, UNK
     Route: 048
     Dates: start: 20170502, end: 20170502
  19. LIMAPROST ALFADEX [Concomitant]
     Active Substance: LIMAPROST
     Dosage: 15 MUG, UNK
     Route: 048
     Dates: start: 20171019
  20. ZINC OXIDE. [Concomitant]
     Active Substance: ZINC OXIDE
     Indication: PRURITUS
     Dosage: ADEQUATE DOSE, UNK
     Route: 061
     Dates: end: 20160105
  21. WARFARIN [Concomitant]
     Active Substance: WARFARIN
     Indication: ATRIAL FIBRILLATION
     Dosage: 4 MG, UNK
     Route: 048
  22. WARFARIN [Concomitant]
     Active Substance: WARFARIN
     Dosage: 3.5 MG, UNK
     Route: 048
     Dates: start: 20170620, end: 20170814
  23. MAGNESIUM OXIDE. [Concomitant]
     Active Substance: MAGNESIUM OXIDE
     Indication: CONSTIPATION
     Dosage: UNK, AS NECESSARY
     Route: 048
  24. EXJADE [Concomitant]
     Active Substance: DEFERASIROX
     Dosage: 750 MG, UNK
     Route: 048
     Dates: start: 20170912, end: 20171102
  25. METHYCOBAL [Concomitant]
     Active Substance: METHYLCOBALAMIN
     Indication: BACK PAIN
     Dosage: 1500 MUG, UNK
     Route: 048
     Dates: start: 20171103
  26. LUNESTA [Concomitant]
     Active Substance: ESZOPICLONE
     Dosage: 1 MG, UNK
     Route: 048
     Dates: start: 20171019, end: 20171025
  27. TULOBUTEROL [Concomitant]
     Active Substance: TULOBUTEROL
     Indication: COUGH
     Dosage: 2 MG, UNK
     Route: 062
     Dates: start: 201710
  28. NORSPAN [Concomitant]
     Active Substance: BUPRENORPHINE
     Dosage: 10 MG, QWK
     Route: 062
     Dates: start: 20171025
  29. DARBEPOETIN ALFA [Suspect]
     Active Substance: DARBEPOETIN ALFA
     Dosage: 240 MUG, QWK
     Route: 058
     Dates: start: 20160405, end: 20170509
  30. WARFARIN [Concomitant]
     Active Substance: WARFARIN
     Dosage: 2.25 MG, UNK
     Route: 048
     Dates: start: 20171020, end: 20171123
  31. PURSENNID [Concomitant]
     Active Substance: SENNOSIDES A AND B
     Indication: CONSTIPATION
     Dosage: UNK UNK, AS NECESSARY
     Route: 048
  32. NEUROTROPIN [Concomitant]
     Active Substance: NEUROTROPIN
     Dosage: 16 IU, UNK
     Route: 048
     Dates: start: 20171103
  33. LYRICA [Concomitant]
     Active Substance: PREGABALIN
     Dosage: 150 MG, UNK
     Route: 048
     Dates: start: 20171103, end: 20171116
  34. DARBEPOETIN ALFA [Suspect]
     Active Substance: DARBEPOETIN ALFA
     Dosage: 240 MUG, Q2WK
     Route: 058
     Dates: start: 20160315, end: 20170329
  35. ALLELOCK [Concomitant]
     Active Substance: OLOPATADINE HYDROCHLORIDE
     Indication: PRURITUS
     Dosage: 5 MG, UNK
     Route: 048
     Dates: end: 20160105
  36. CELECOX [Concomitant]
     Active Substance: CELECOXIB
     Indication: OSTEOARTHRITIS
     Dosage: 200 MG, UNK
     Route: 048
     Dates: start: 20170620, end: 20171102
  37. LOXONIN [Concomitant]
     Active Substance: LOXOPROFEN SODIUM
     Dosage: 200 MG, UNK
     Route: 061
     Dates: start: 20170718, end: 20171108
  38. LYRICA [Concomitant]
     Active Substance: PREGABALIN
     Dosage: 50 MG, UNK
     Route: 048
     Dates: start: 20171019, end: 20171021
  39. DARBEPOETIN ALFA [Suspect]
     Active Substance: DARBEPOETIN ALFA
     Dosage: 240 MUG, UNK
     Route: 058
     Dates: start: 20170523, end: 20170523
  40. WARFARIN [Concomitant]
     Active Substance: WARFARIN
     Dosage: 3.25 MG, UNK
     Route: 048
     Dates: start: 20170328, end: 20170424
  41. CALONAL [Concomitant]
     Active Substance: ACETAMINOPHEN
     Dosage: 200 MG, UNK
     Route: 048
     Dates: start: 20171016, end: 20171020
  42. MYSER [Concomitant]
     Indication: PRURITUS
     Dosage: UNK
     Route: 061
     Dates: end: 20160105
  43. BISMUTH SUBGALLATE [Concomitant]
     Active Substance: BISMUTH SUBGALLATE
     Indication: PRURITUS
     Dosage: ADEQUATE DOSE, UNK
     Route: 061
     Dates: end: 20160105
  44. WARFARIN [Concomitant]
     Active Substance: WARFARIN
     Dosage: 3 MG, UNK
     Route: 048
     Dates: end: 20160829
  45. WARFARIN [Concomitant]
     Active Substance: WARFARIN
     Dosage: 3.25 MG, UNK
     Route: 048
     Dates: start: 20160830, end: 20161107
  46. EXJADE [Concomitant]
     Active Substance: DEFERASIROX
     Dosage: 375 MG, UNK
     Route: 048
     Dates: start: 20170214, end: 20170508
  47. ABILIFY [Concomitant]
     Active Substance: ARIPIPRAZOLE
     Indication: INSOMNIA
     Dosage: 6 MG, UNK
     Route: 048
     Dates: start: 20171103
  48. LEVOFLOXACIN HEMIHYDRATE [Concomitant]
     Active Substance: LEVOFLOXACIN
     Dosage: ADEQUATE DOSE, UNK
     Route: 047
     Dates: start: 20161220, end: 20170214
  49. NIFLAN [Concomitant]
     Active Substance: PRANOPROFEN
     Dosage: ADEQUATE DOSE, UNK
     Route: 047
     Dates: start: 20170214, end: 20170411
  50. LOXONIN [Concomitant]
     Active Substance: LOXOPROFEN SODIUM
     Dosage: 60 MG, UNK
     Route: 048
     Dates: start: 20170502, end: 20170502
  51. LYRICA [Concomitant]
     Active Substance: PREGABALIN
     Dosage: 100 MG, UNK
     Route: 048
     Dates: start: 20171022, end: 20171102
  52. MOHRUS [Concomitant]
     Active Substance: KETOPROFEN
     Dosage: 30 MG, UNK
     Route: 061
     Dates: start: 20170502

REACTIONS (12)
  - Conjunctivitis bacterial [Recovered/Resolved]
  - Pneumonia [Recovered/Resolved]
  - Genital erythema [Recovering/Resolving]
  - Insomnia [Recovered/Resolved]
  - Iron overload [Recovering/Resolving]
  - Femur fracture [Unknown]
  - Urinary tract infection [Recovered/Resolved]
  - Pneumonia [Recovered/Resolved]
  - Spinal compression fracture [Recovering/Resolving]
  - Back pain [Recovering/Resolving]
  - Cough [Recovered/Resolved]
  - Back pain [Recovered/Resolved]

NARRATIVE: CASE EVENT DATE: 20161220
